FAERS Safety Report 16855665 (Version 1)
Quarter: 2019Q3

REPORT INFORMATION
  Report Type: Spontaneous
  Country: PK (occurrence: PK)
  Receive Date: 20190926
  Receipt Date: 20190926
  Transmission Date: 20191005
  Serious: Yes (Death)
  Sender: FDA-Public Use
  Company Number: PK-PFIZER INC-2019398411

PATIENT
  Age: 63 Year
  Sex: Female

DRUGS (9)
  1. TIGECYCLINE. [Suspect]
     Active Substance: TIGECYCLINE
     Indication: RAOULTELLA ORNITHINOLYTICA INFECTION
     Dosage: UNK
     Route: 042
  2. FLUCONAZOLE. [Suspect]
     Active Substance: FLUCONAZOLE
     Indication: RAOULTELLA ORNITHINOLYTICA INFECTION
     Dosage: UNK
     Route: 042
  3. FLUCONAZOLE. [Suspect]
     Active Substance: FLUCONAZOLE
     Indication: CANDIDA INFECTION
  4. COTRIMOXAZOLE [Suspect]
     Active Substance: SULFAMETHOXAZOLE\TRIMETHOPRIM
     Indication: RAOULTELLA ORNITHINOLYTICA INFECTION
     Dosage: UNK
     Route: 042
  5. MEROPENEM. [Concomitant]
     Active Substance: MEROPENEM
     Indication: PNEUMONIA BACTERIAL
     Dosage: UNK
  6. COLISTIN [Suspect]
     Active Substance: COLISTIN
     Indication: PNEUMONIA BACTERIAL
     Dosage: UNK
  7. COLISTIN [Suspect]
     Active Substance: COLISTIN
     Indication: RAOULTELLA ORNITHINOLYTICA INFECTION
     Dosage: UNK
     Route: 042
  8. COLISTIN [Suspect]
     Active Substance: COLISTIN
     Indication: PNEUMONIA ACINETOBACTER
  9. MEROPENEM. [Concomitant]
     Active Substance: MEROPENEM
     Indication: PNEUMONIA ACINETOBACTER

REACTIONS (1)
  - Drug ineffective [Fatal]
